FAERS Safety Report 20968317 (Version 2)
Quarter: 2022Q2

REPORT INFORMATION
  Report Type: Spontaneous
  Country: GB (occurrence: GB)
  Receive Date: 20220616
  Receipt Date: 20220622
  Transmission Date: 20220720
  Serious: Yes (Other)
  Sender: FDA-Public Use
  Company Number: None

PATIENT
  Age: 42 Year
  Sex: Female
  Weight: 52 kg

DRUGS (9)
  1. METHOTREXATE SODIUM [Suspect]
     Active Substance: METHOTREXATE SODIUM
     Dosage: UNK
     Route: 065
     Dates: start: 20220518
  2. ALENDRONIC ACID [Concomitant]
     Active Substance: ALENDRONIC ACID
     Dosage: TAKE ONE WEEKLY
     Route: 065
     Dates: start: 20210709
  3. BARICITINIB [Concomitant]
     Active Substance: BARICITINIB
     Dosage: OD
     Route: 065
     Dates: start: 20220409
  4. LANSOPRAZOLE [Concomitant]
     Active Substance: LANSOPRAZOLE
     Dosage: TAKE ONE, DAILY
     Route: 065
     Dates: start: 20210709
  5. NITROFURANTOIN [Concomitant]
     Active Substance: NITROFURANTOIN
     Dosage: TAKE ONE , 2X/DAY
     Route: 065
     Dates: start: 20220513, end: 20220520
  6. PREDNISOLONE [Concomitant]
     Active Substance: PREDNISOLONE
     Dosage: TAKE 3, DAILY
     Route: 065
     Dates: start: 20210709
  7. PREGABALIN [Concomitant]
     Active Substance: PREGABALIN
     Dosage: TAKE ONE , 2X/DAY
     Route: 065
     Dates: start: 20211007
  8. SERTRALINE [Concomitant]
     Active Substance: SERTRALINE HYDROCHLORIDE
     Dosage: OD
     Route: 065
     Dates: start: 20210709
  9. SOLIFENACIN [Concomitant]
     Active Substance: SOLIFENACIN
     Dosage: TAKE ONE , DAILY
     Route: 065
     Dates: start: 20210709

REACTIONS (2)
  - Alopecia [Unknown]
  - Drug intolerance [Unknown]

NARRATIVE: CASE EVENT DATE: 20220518
